FAERS Safety Report 5975916-5 (Version None)
Quarter: 2008Q4

REPORT INFORMATION
  Report Type: 
  Country: None (occurrence: None)
  Receive Date: 20081202
  Receipt Date: 20081126
  Transmission Date: 20090506
  Serious: Yes (Hospitalization)
  Sender: FDA-Public Use
  Company Number: AT-ROCHE-331169

PATIENT
  Sex: Male
  Weight: 82 kg

DRUGS (4)
  1. PEG-INTERFERON ALFA 2A (RO 25-8310) [Suspect]
     Route: 058
     Dates: start: 20020611, end: 20030206
  2. RIBAVIRIN [Suspect]
     Route: 048
     Dates: start: 20020611, end: 20030206
  3. AMANTADINE HCL [Suspect]
     Route: 048
     Dates: start: 20020611, end: 20030206
  4. UROSIN [Concomitant]
     Dates: start: 20030113

REACTIONS (1)
  - NON-HODGKIN'S LYMPHOMA [None]
